FAERS Safety Report 15331453 (Version 1)
Quarter: 2018Q3

REPORT INFORMATION
  Report Type: Spontaneous
  Country: US (occurrence: US)
  Receive Date: 20180829
  Receipt Date: 20180829
  Transmission Date: 20181010
  Serious: No
  Sender: FDA-Public Use
  Company Number: US-BAYER-2018-159466

PATIENT
  Sex: Female

DRUGS (11)
  1. NEURONTIN [Concomitant]
     Active Substance: GABAPENTIN
  2. CLOTRIMAZOL [Concomitant]
     Active Substance: CLOTRIMAZOLE
  3. SYNTHROID [Concomitant]
     Active Substance: LEVOTHYROXINE SODIUM
  4. AMBIEN [Concomitant]
     Active Substance: ZOLPIDEM TARTRATE
  5. NEURONTIN [Concomitant]
     Active Substance: GABAPENTIN
  6. CLARITHROMYCIN. [Concomitant]
     Active Substance: CLARITHROMYCIN
  7. AMLODIPINE [Concomitant]
     Active Substance: AMLODIPINE BESYLATE
  8. HYDROXYZINE [Concomitant]
     Active Substance: HYDROXYZINE HYDROCHLORIDE
  9. TRILEPTAL [Concomitant]
     Active Substance: OXCARBAZEPINE
  10. BETASERON [Suspect]
     Active Substance: INTERFERON BETA-1B
     Indication: MULTIPLE SCLEROSIS
     Dosage: 0.25 MG, UNK
     Route: 058
  11. LORAZEPAM. [Concomitant]
     Active Substance: LORAZEPAM
     Dosage: UNK

REACTIONS (5)
  - Hypoaesthesia [Not Recovered/Not Resolved]
  - Depression [Not Recovered/Not Resolved]
  - Dyslexia [Not Recovered/Not Resolved]
  - Trigeminal neuralgia [Not Recovered/Not Resolved]
  - Bladder disorder [Not Recovered/Not Resolved]
